FAERS Safety Report 5160389-5 (Version None)
Quarter: 2006Q4

REPORT INFORMATION
  Report Type: 
  Country: None (occurrence: None)
  Receive Date: 20061120
  Receipt Date: 20061106
  Transmission Date: 20070319
  Serious: Yes (Hospitalization)
  Sender: FDA-Public Use
  Company Number: 226488

PATIENT
  Age: 55 Year
  Sex: Male
  Weight: 111.3 kg

DRUGS (13)
  1. EFALIZUMAB [Suspect]
     Indication: PSORIASIS
     Dosage: 1 MG, 1/WEEK, SUBCUTANEOUS
     Route: 058
     Dates: start: 20051205, end: 20060604
  2. ZOLOFT [Concomitant]
  3. ATENOLOL [Concomitant]
  4. METHOTREXATE [Concomitant]
  5. FOLIC ACID [Concomitant]
  6. METFORMIN HCL [Concomitant]
  7. TRICOR [Concomitant]
  8. MIMYX CREAM                    (DERMATOLOGIC AGENT NOS) [Concomitant]
  9. SALEX CREAM                   (SALICYLIC ACID) [Concomitant]
  10. CLOBEX [Concomitant]
  11. ASPIRIN [Concomitant]
  12. MULTIVITAMIN (MULTIVITAMINS NOS) [Concomitant]
  13. CEPHALEXIN [Concomitant]

REACTIONS (17)
  - ANOREXIA [None]
  - CHILLS [None]
  - DIVERTICULITIS [None]
  - ENCEPHALITIS [None]
  - HEADACHE [None]
  - HERPES VIRUS INFECTION [None]
  - IMMUNE SYSTEM DISORDER [None]
  - MENINGITIS VIRAL [None]
  - NECK PAIN [None]
  - NIGHT SWEATS [None]
  - PHONOPHOBIA [None]
  - PHOTOPHOBIA [None]
  - PYREXIA [None]
  - RASH GENERALISED [None]
  - SINUSITIS [None]
  - STOMATITIS [None]
  - WEIGHT DECREASED [None]
